FAERS Safety Report 8759523 (Version 1)
Quarter: 2012Q4

REPORT INFORMATION
  Report Type: 
  Country: BE (occurrence: BE)
  Receive Date: 20120829
  Receipt Date: 20120829
  Transmission Date: 20130627
  Serious: Yes (Other)
  Sender: FDA-Public Use
  Company Number: BE-AMGEN-BELSP2012052876

PATIENT
  Age: 61 Year
  Sex: Female

DRUGS (5)
  1. SENSIPAR [Suspect]
     Indication: HYPERPARATHYROIDISM SECONDARY
     Dosage: 60 mg, UNK
     Dates: start: 201202
  2. INSULIN                            /00646001/ [Concomitant]
     Indication: TYPE 2 DIABETES MELLITUS
  3. SEVELAMER CARBONATE [Concomitant]
     Dosage: 4800 mg, UNK
  4. ALPHACALCIDOL [Concomitant]
     Dosage: 3 mu, qwk
  5. ANTIHYPERTENSIVES [Concomitant]
     Indication: HYPERTENSION

REACTIONS (3)
  - Calciphylaxis [Recovered/Resolved]
  - Pseudomonas infection [Recovered/Resolved]
  - Pain [Recovered/Resolved]
